FAERS Safety Report 5343814-6 (Version None)
Quarter: 2007Q2

REPORT INFORMATION
  Report Type: 
  Country: None (occurrence: None)
  Receive Date: 20070531
  Receipt Date: 20070521
  Transmission Date: 20071010
  Serious: Yes (Other)
  Sender: FDA-Public Use
  Company Number: 07H-163-0312650

PATIENT
  Age: 19 Year
  Sex: Male

DRUGS (2)
  1. A-METHOPRED INJECTION (METHYLPREDNISOLONE SODIUM SUCCINATE) (METHYLPRE [Suspect]
     Indication: MIGRAINE
     Dosage: 100 MG, TWICE DAILY, INTRAVENOUS
     Route: 042
  2. DIHYDROERGOTAMINE MESYLATE [Concomitant]

REACTIONS (1)
  - OSTEONECROSIS [None]
